FAERS Safety Report 7776746 (Version 2)
Quarter: 2018Q4

REPORT INFORMATION
  Report Type: Spontaneous
  Country: SE (occurrence: SE)
  Receive Date: 20110127
  Receipt Date: 20181108
  Transmission Date: 20190205
  Serious: Yes (Hospitalization, Other)
  Sender: FDA-Public Use
  Company Number: SE-PFIZER INC-2011016090

PATIENT
  Age: 34 Year
  Sex: Male

DRUGS (3)
  1. SALAZOPYRIN [Suspect]
     Active Substance: SULFASALAZINE
     Indication: ENTHESOPATHY
     Dosage: 2 G, DAILY
     Route: 048
     Dates: start: 20100914, end: 20101108
  2. PREDNISOLONE. [Concomitant]
     Active Substance: PREDNISOLONE
     Dosage: UNK
  3. CALCICHEW-D3 [Concomitant]
     Active Substance: CALCIUM\CHOLECALCIFEROL
     Dosage: UNK

REACTIONS (3)
  - Agranulocytosis [Recovered/Resolved]
  - B-cell lymphoma [Unknown]
  - Sepsis [Recovered/Resolved]

NARRATIVE: CASE EVENT DATE: 201011
